FAERS Safety Report 4341604-4 (Version None)
Quarter: 2004Q2

REPORT INFORMATION
  Report Type: 
  Country: None (occurrence: None)
  Receive Date: 20040415
  Receipt Date: 20040330
  Transmission Date: 20050107
  Serious: Yes (Other)
  Sender: FDA-Public Use
  Company Number: US_0403101889

PATIENT
  Age: 87 Year
  Sex: Female

DRUGS (2)
  1. EVISTA [Suspect]
     Dates: end: 20020101
  2. FOSAMAX [Concomitant]

REACTIONS (3)
  - HIP FRACTURE [None]
  - LUMBAR VERTEBRAL FRACTURE [None]
  - UPPER LIMB FRACTURE [None]
